FAERS Safety Report 7434856-5 (Version None)
Quarter: 2011Q2

REPORT INFORMATION
  Report Type: 
  Country: None (occurrence: None)
  Receive Date: 20110425
  Receipt Date: 20110414
  Transmission Date: 20111010
  Serious: Yes (Hospitalization, Other)
  Sender: FDA-Public Use
  Company Number: FR-JNJFOC-20110310240

PATIENT
  Sex: Male
  Weight: 63 kg

DRUGS (9)
  1. ABIRATERONE [Concomitant]
     Indication: PROSTATE CANCER
     Route: 048
     Dates: start: 20110101
  2. LAROXYL [Concomitant]
     Route: 048
  3. MOPRAL [Concomitant]
     Indication: PRODUCT USED FOR UNKNOWN INDICATION
     Route: 048
  4. OXYNORM [Concomitant]
     Indication: ANALGESIC THERAPY
     Route: 048
  5. CORTANCYL [Concomitant]
     Indication: PROSTATE CANCER
     Route: 065
  6. DURAGESIC-100 [Suspect]
     Indication: ANALGESIC THERAPY
     Route: 062
  7. ALPRAZOLAM [Concomitant]
     Indication: PRODUCT USED FOR UNKNOWN INDICATION
     Route: 048
  8. RIVOTRIL [Concomitant]
     Route: 048
  9. EFFERALGAN [Concomitant]
     Indication: PRODUCT USED FOR UNKNOWN INDICATION
     Route: 048

REACTIONS (3)
  - HAEMOGLOBIN DECREASED [None]
  - INSOMNIA [None]
  - WITHDRAWAL SYNDROME [None]
